FAERS Safety Report 6153525-5 (Version None)
Quarter: 2009Q2

REPORT INFORMATION
  Report Type: 
  Country: None (occurrence: None)
  Receive Date: 20090413
  Receipt Date: 20090403
  Transmission Date: 20091009
  Serious: Yes (Other)
  Sender: FDA-Public Use
  Company Number: PL-CELGENEUS-129-20785-09040556

PATIENT

DRUGS (1)
  1. THALOMID [Suspect]
     Indication: MULTIPLE MYELOMA
     Route: 048

REACTIONS (14)
  - ADAMS-STOKES SYNDROME [None]
  - ATRIAL FIBRILLATION [None]
  - BRADYARRHYTHMIA [None]
  - CONSTIPATION [None]
  - FATIGUE [None]
  - HYPERTENSION [None]
  - LEUKAEMIA PLASMACYTIC [None]
  - MUSCULAR WEAKNESS [None]
  - NEUROPATHY PERIPHERAL [None]
  - NEUTROPENIA [None]
  - PNEUMONIA [None]
  - RENAL FAILURE ACUTE [None]
  - SOMNOLENCE [None]
  - SUDDEN HEARING LOSS [None]
